FAERS Safety Report 14203086 (Version 1)
Quarter: 2017Q4

REPORT INFORMATION
  Report Type: Spontaneous
  Country: SE (occurrence: SE)
  Receive Date: 20171120
  Receipt Date: 20171120
  Transmission Date: 20180321
  Serious: Yes (Hospitalization)
  Sender: FDA-Public Use
  Company Number: SE-CONCORDIA PHARMACEUTICALS INC.-GSH201603-001481

PATIENT
  Age: 77 Year
  Sex: Female

DRUGS (4)
  1. PARNATE [Suspect]
     Active Substance: TRANYLCYPROMINE SULFATE
     Dosage: 10+30 MG
     Route: 048
     Dates: start: 20160104, end: 20160104
  2. PARNATE [Suspect]
     Active Substance: TRANYLCYPROMINE SULFATE
     Dosage: 20+30 MG
     Route: 048
     Dates: start: 20160105, end: 20160109
  3. PARNATE [Suspect]
     Active Substance: TRANYLCYPROMINE SULFATE
     Indication: BIPOLAR DISORDER
     Route: 048
     Dates: start: 20151218, end: 20151227
  4. PARNATE [Suspect]
     Active Substance: TRANYLCYPROMINE SULFATE
     Dosage: 10+20 MG
     Route: 048
     Dates: start: 20151228, end: 20160103

REACTIONS (1)
  - Serotonin syndrome [Recovered/Resolved]

NARRATIVE: CASE EVENT DATE: 20160109
